FAERS Safety Report 5169768-3 (Version None)
Quarter: 2006Q4

REPORT INFORMATION
  Report Type: 
  Country: None (occurrence: None)
  Receive Date: 20061212
  Receipt Date: 20061201
  Transmission Date: 20070319
  Serious: Yes (Other)
  Sender: FDA-Public Use
  Company Number: PHNU2006DE04052

PATIENT
  Age: 47 Year
  Sex: Female

DRUGS (1)
  1. ZELMAC [Suspect]

REACTIONS (3)
  - CIRCULATORY COLLAPSE [None]
  - FATIGUE [None]
  - PARTIAL SEIZURES [None]
